FAERS Safety Report 4768466-5 (Version None)
Quarter: 2005Q3

REPORT INFORMATION
  Report Type: 
  Country: None (occurrence: None)
  Receive Date: 20050914
  Receipt Date: 20050909
  Transmission Date: 20060218
  Serious: Yes (Other)
  Sender: FDA-Public Use
  Company Number: CA-MERCK-0509USA01133

PATIENT
  Age: 13 Year
  Sex: Female
  Weight: 68 kg

DRUGS (1)
  1. SINGULAIR [Suspect]
     Route: 048

REACTIONS (3)
  - ABDOMINAL PAIN [None]
  - GASTRITIS [None]
  - VOMITING [None]
